FAERS Safety Report 4284789-0 (Version None)
Quarter: 2004Q1

REPORT INFORMATION
  Report Type: 
  Country: None (occurrence: None)
  Receive Date: 20040202
  Receipt Date: 20040119
  Transmission Date: 20041129
  Serious: Yes (Hospitalization)
  Sender: FDA-Public Use
  Company Number: 04P-062-0247832-00

PATIENT
  Age: 29 Year
  Sex: Male

DRUGS (1)
  1. AKINETON [Suspect]
     Dosage: 2 MG, 1 IN 1 D, PER ORAL
     Route: 048
     Dates: end: 20040119

REACTIONS (1)
  - CIRCULATORY COLLAPSE [None]
